FAERS Safety Report 9751561 (Version 1)
Quarter: 2013Q4

REPORT INFORMATION
  Report Type: Spontaneous
  Country: US (occurrence: US)
  Receive Date: 20131212
  Receipt Date: 20131212
  Transmission Date: 20140711
  Serious: Yes (Other)
  Sender: FDA-Public Use
  Company Number: US-NAPPMUNDI-USA-2013-0104600

PATIENT
  Age: 55 Year
  Sex: Male

DRUGS (3)
  1. DILAUDID TABLET [Suspect]
     Indication: PAIN
     Dosage: UNK
     Route: 048
     Dates: start: 2008
  2. MARIJUANA [Suspect]
     Indication: PAIN
     Dosage: MEDICAL MARIJUANA, SEE TEXT
  3. OXYCODONE HYDROCHLORIDE (SIMILAR TO NDA 22-272) [Concomitant]
     Indication: PAIN
     Dosage: UNK, SEE TEXT
     Route: 048

REACTIONS (1)
  - Drug dependence [Unknown]
